FAERS Safety Report 13260185 (Version 7)
Quarter: 2018Q1

REPORT INFORMATION
  Report Type: Report from Study
  Country: US (occurrence: CA)
  Receive Date: 20170222
  Receipt Date: 20180205
  Transmission Date: 20180508
  Serious: Yes (Other)
  Sender: FDA-Public Use
  Company Number: US-SUNOVION-2017SUN000672

PATIENT
  Age: 68 Year
  Sex: Female

DRUGS (26)
  1. XOLAIR [Suspect]
     Active Substance: OMALIZUMAB
     Dosage: UNK; REGIMEN #11
     Route: 058
     Dates: start: 20161104
  2. XOLAIR [Suspect]
     Active Substance: OMALIZUMAB
     Dosage: UNK  REGIMEN #17
     Route: 058
     Dates: start: 20170505
  3. XOLAIR [Suspect]
     Active Substance: OMALIZUMAB
     Dosage: UNK; REGIMEN #4
     Route: 058
     Dates: start: 20160113
  4. XOLAIR [Suspect]
     Active Substance: OMALIZUMAB
     Dosage: UNK (REGIMEN #20)
     Route: 058
     Dates: start: 20170616
  5. ZENHALE [Concomitant]
     Active Substance: FORMOTEROL FUMARATE\MOMETASONE FUROATE
     Dosage: UNK (100/5 UG)
  6. XOLAIR [Suspect]
     Active Substance: OMALIZUMAB
     Dosage: UNK; REGIMEN #3
     Route: 058
     Dates: start: 20151229
  7. XOLAIR [Suspect]
     Active Substance: OMALIZUMAB
     Dosage: UNK; REGIMEN #7
     Route: 058
     Dates: start: 20160823
  8. XOLAIR [Suspect]
     Active Substance: OMALIZUMAB
     Dosage: UNK; REGIMEN #12
     Route: 058
     Dates: start: 20161216
  9. XOLAIR [Suspect]
     Active Substance: OMALIZUMAB
     Dosage: 300 MG BIW REGIMENT #15
     Route: 058
     Dates: start: 20170130
  10. XOLAIR [Suspect]
     Active Substance: OMALIZUMAB
     Dosage: UNK; REGIMEN #13
     Route: 058
     Dates: start: 20161230
  11. XOLAIR [Suspect]
     Active Substance: OMALIZUMAB
     Dosage: UNK; REGIMEN #14
     Route: 058
     Dates: start: 20170113
  12. VENTOLIN [Concomitant]
     Active Substance: ALBUTEROL SULFATE
     Dosage: 100 ?G, UNK
  13. GLYCOPYRROLATE. [Suspect]
     Active Substance: GLYCOPYRROLATE
     Indication: ASTHMA
     Dosage: 1 DF (50 UG), QD
     Route: 055
     Dates: start: 201407
  14. XOLAIR [Suspect]
     Active Substance: OMALIZUMAB
     Dosage: UNK  REGIMENT #16
     Dates: start: 20170421
  15. XOLAIR [Suspect]
     Active Substance: OMALIZUMAB
     Dosage: UNK REGIMEN #19
     Route: 058
     Dates: start: 20170602
  16. XOLAIR [Suspect]
     Active Substance: OMALIZUMAB
     Dosage: UNK (REGIMEN #23)
     Route: 058
     Dates: start: 20180119
  17. XOLAIR [Suspect]
     Active Substance: OMALIZUMAB
     Dosage: UNK; REGIMEN #2
     Route: 058
     Dates: start: 20151103
  18. XOLAIR [Suspect]
     Active Substance: OMALIZUMAB
     Dosage: UNK REGIMEN #18
     Route: 058
     Dates: start: 20170602
  19. XOLAIR [Suspect]
     Active Substance: OMALIZUMAB
     Indication: ASTHMA
     Dosage: 300 MG, BIW; REGIMEN #1
     Route: 058
     Dates: start: 20150211
  20. XOLAIR [Suspect]
     Active Substance: OMALIZUMAB
     Dosage: UNK; REGIMEN #9
     Route: 058
     Dates: start: 20161007
  21. XOLAIR [Suspect]
     Active Substance: OMALIZUMAB
     Dosage: UNK; REGIMEN #10
     Route: 058
     Dates: start: 20161021
  22. XOLAIR [Suspect]
     Active Substance: OMALIZUMAB
     Dosage: UNK (REGIMEN #22)
     Route: 058
     Dates: start: 20171027
  23. XOLAIR [Suspect]
     Active Substance: OMALIZUMAB
     Dosage: UNK; REGIMEN #5
     Route: 058
     Dates: start: 20160309
  24. XOLAIR [Suspect]
     Active Substance: OMALIZUMAB
     Dosage: UNK; REGIMEN #6
     Route: 058
     Dates: start: 20160809
  25. XOLAIR [Suspect]
     Active Substance: OMALIZUMAB
     Dosage: UNK; REGIMEN #8
     Route: 058
     Dates: start: 20160923
  26. XOLAIR [Suspect]
     Active Substance: OMALIZUMAB
     Dosage: UNK (REGIMEN #21)
     Route: 058
     Dates: start: 20170714

REACTIONS (23)
  - Dizziness [Recovered/Resolved]
  - Respiratory tract congestion [Unknown]
  - Forced vital capacity decreased [Unknown]
  - Rhinorrhoea [Unknown]
  - Nasal congestion [Unknown]
  - Pruritus [Not Recovered/Not Resolved]
  - Wheezing [Unknown]
  - Forced expiratory volume decreased [Unknown]
  - Rales [Unknown]
  - Cough [Unknown]
  - Rash [Not Recovered/Not Resolved]
  - Urticaria [Recovering/Resolving]
  - Fall [Unknown]
  - Blood pressure systolic increased [Unknown]
  - Peripheral swelling [Not Recovered/Not Resolved]
  - Oxygen saturation decreased [Not Recovered/Not Resolved]
  - Nasal polyps [Unknown]
  - Lung disorder [Unknown]
  - Obstructive airways disorder [Unknown]
  - Erythema [Not Recovered/Not Resolved]
  - Hypoventilation [Unknown]
  - Upper limb fracture [Unknown]
  - Nasopharyngitis [Unknown]

NARRATIVE: CASE EVENT DATE: 2015
